FAERS Safety Report 7017144-0 (Version None)
Quarter: 2010Q3

REPORT INFORMATION
  Report Type: 
  Country: None (occurrence: None)
  Receive Date: 20100909
  Receipt Date: 20100712
  Transmission Date: 20110219
  Serious: No
  Sender: FDA-Public Use
  Company Number: 2010SP038458

PATIENT
  Age: 66 Year
  Sex: Female

DRUGS (3)
  1. SAPHRIS [Suspect]
     Indication: BIPOLAR I DISORDER
     Dosage: 5 MG ; BID ; SL
     Route: 060
     Dates: start: 20100708, end: 20100709
  2. SERAQUEL [Concomitant]
  3. ZYPREXA [Concomitant]

REACTIONS (2)
  - ABDOMINAL RIGIDITY [None]
  - MUSCLE TWITCHING [None]
